FAERS Safety Report 6732105-4 (Version None)
Quarter: 2010Q2

REPORT INFORMATION
  Report Type: 
  Country: None (occurrence: None)
  Receive Date: 20100519
  Receipt Date: 20100510
  Transmission Date: 20101027
  Serious: Yes (Other)
  Sender: FDA-Public Use
  Company Number: EG-PFIZER INC-2010058269

PATIENT
  Age: 35 Year
  Sex: Female

DRUGS (4)
  1. ZITHROMAX [Suspect]
     Indication: PNEUMONIA
     Dosage: 500 MG, 1X/DAY
     Route: 042
     Dates: start: 20100503, end: 20100507
  2. CEFOBID [Concomitant]
     Indication: PNEUMONIA
     Dosage: 2 G, 2X/DAY
     Route: 042
     Dates: start: 20100503
  3. GARAMYCIN [Concomitant]
     Indication: PNEUMONIA
     Dosage: 80 MG, 2X/DAY
     Route: 042
     Dates: start: 20100503
  4. INSULIN [Concomitant]
     Indication: DIABETES MELLITUS
     Dosage: UNK

REACTIONS (3)
  - CARDIOGENIC SHOCK [None]
  - HYPOTENSION [None]
  - TACHYCARDIA [None]
